FAERS Safety Report 6727623-9 (Version None)
Quarter: 2010Q2

REPORT INFORMATION
  Report Type: 
  Country: None (occurrence: None)
  Receive Date: 20100517
  Receipt Date: 20100517
  Transmission Date: 20101027
  Serious: Yes (Hospitalization)
  Sender: FDA-Public Use
  Company Number: None

PATIENT
  Age: 18 Month
  Sex: Female
  Weight: 10.4327 kg

DRUGS (2)
  1. CONCENTRATED MOTRIN INFANTS DROPS [Suspect]
     Indication: PYREXIA
     Dosage: 1.875 ML EVERY 6 HOURS PO
     Route: 048
     Dates: start: 20100101, end: 20100314
  2. CONCENTRATED TYLENOL INFANT DROPS [Suspect]
     Indication: PYREXIA
     Dosage: 1.4 ML EVERY 4 HOURS PO
     Route: 048
     Dates: start: 20100101, end: 20100314

REACTIONS (4)
  - FEBRILE CONVULSION [None]
  - HYPERHIDROSIS [None]
  - PRODUCT QUALITY ISSUE [None]
  - VOMITING [None]
